FAERS Safety Report 4324304-6 (Version None)
Quarter: 2004Q1

REPORT INFORMATION
  Report Type: 
  Country: None (occurrence: None)
  Receive Date: 20040326
  Receipt Date: 20040122
  Transmission Date: 20041129
  Serious: No
  Sender: FDA-Public Use
  Company Number: US-GLAXOSMITHKLINE-A0494921A

PATIENT
  Age: 64 Year
  Sex: Female

DRUGS (5)
  1. ADVAIR DISKUS 100/50 [Suspect]
     Indication: ASTHMA
     Route: 055
     Dates: start: 20021201, end: 20030101
  2. SEREVENT [Suspect]
     Indication: ASTHMA
     Dosage: 2PUFF TWICE PER DAY
     Route: 055
     Dates: start: 20030701, end: 20040101
  3. ZOCOR [Concomitant]
  4. OGEN [Concomitant]
  5. FLOVENT [Concomitant]

REACTIONS (3)
  - APHONIA [None]
  - HOARSENESS [None]
  - PHARYNGOLARYNGEAL PAIN [None]
